FAERS Safety Report 23892926 (Version 1)
Quarter: 2024Q2

REPORT INFORMATION
  Report Type: Spontaneous
  Country: US (occurrence: None)
  Receive Date: 20240524
  Receipt Date: 20240524
  Transmission Date: 20240715
  Serious: No
  Sender: FDA-Public Use
  Company Number: US-ROCHE-3515851

PATIENT
  Sex: Female
  Weight: 69 kg

DRUGS (8)
  1. ACTEMRA [Suspect]
     Active Substance: TOCILIZUMAB
     Indication: Giant cell arteritis
     Dosage: YES
     Route: 058
     Dates: start: 2022
  2. ACTEMRA [Suspect]
     Active Substance: TOCILIZUMAB
  3. HYDROCHLOROTHIAZIDE [Concomitant]
     Active Substance: HYDROCHLOROTHIAZIDE
     Indication: Blood pressure measurement
     Route: 048
  4. TELMISARTAN [Concomitant]
     Active Substance: TELMISARTAN
     Indication: Blood pressure measurement
     Route: 048
  5. PRAVASTATIN [Concomitant]
     Active Substance: PRAVASTATIN
     Indication: Blood cholesterol
     Route: 048
  6. PEPCID [Concomitant]
     Active Substance: FAMOTIDINE
     Route: 048
  7. ESTRADIOL [Concomitant]
     Active Substance: ESTRADIOL
     Route: 048
  8. ASPIRIN [Concomitant]
     Active Substance: ASPIRIN
     Route: 048

REACTIONS (11)
  - Underdose [Unknown]
  - Poor quality device used [Unknown]
  - Device defective [Unknown]
  - Wrong technique in product usage process [Unknown]
  - Device defective [Unknown]
  - Injection site reaction [Unknown]
  - Palpitations [Recovered/Resolved]
  - Ill-defined disorder [Unknown]
  - Pain [Unknown]
  - Needle issue [Unknown]
  - Accidental exposure to product [Unknown]

NARRATIVE: CASE EVENT DATE: 20240201
